FAERS Safety Report 9628114 (Version 5)
Quarter: 2013Q4

REPORT INFORMATION
  Report Type: Report from Study
  Country: FR (occurrence: FR)
  Receive Date: 20131017
  Receipt Date: 20131210
  Transmission Date: 20140711
  Serious: Yes (Hospitalization)
  Sender: FDA-Public Use
  Company Number: FR-AMGEN-FRACT2013070077

PATIENT
  Age: 25 Year
  Sex: Male
  Weight: 58 kg

DRUGS (7)
  1. ROMIPLOSTIM [Suspect]
     Indication: THROMBOCYTOPENIA
     Dosage: 600 MUG, UNK
     Route: 058
     Dates: start: 20130808, end: 20131004
  2. NEORAL [Concomitant]
     Indication: PROPHYLAXIS AGAINST GRAFT VERSUS HOST DISEASE
     Dosage: 100 MG, BID/70 MG
     Route: 048
     Dates: start: 20130808
  3. CORTANCYL [Concomitant]
     Dosage: 2.5 MG, UNK
     Route: 048
     Dates: start: 20130927, end: 20131004
  4. NOXAFIL [Concomitant]
     Indication: ANTIFUNGAL PROPHYLAXIS
     Dosage: 600 MG, TID
     Route: 048
     Dates: start: 20130808
  5. WELLVONE [Concomitant]
     Indication: PROPHYLAXIS
     Dosage: 1600 MG, TID/1500
     Route: 048
     Dates: start: 20130726
  6. ROVAMYCINE                         /00074401/ [Concomitant]
     Indication: PROPHYLAXIS
     Dosage: 1.5 IU, BID
     Route: 048
     Dates: start: 20130726
  7. DELURSAN [Concomitant]
     Indication: PROPHYLAXIS
     Dosage: 1500 UNK, UNK
     Route: 048
     Dates: start: 20131017

REACTIONS (6)
  - Pyrexia [Recovered/Resolved]
  - Conjunctivitis [Recovered/Resolved]
  - Pancytopenia [Not Recovered/Not Resolved]
  - Erythema [Recovered/Resolved]
  - Odynophagia [Recovered/Resolved]
  - Staphylococcal infection [Recovered/Resolved]
